FAERS Safety Report 6744154-0 (Version None)
Quarter: 2010Q2

REPORT INFORMATION
  Report Type: 
  Country: None (occurrence: None)
  Receive Date: 20100527
  Receipt Date: 20100521
  Transmission Date: 20101027
  Serious: Yes (Death, Hospitalization)
  Sender: FDA-Public Use
  Company Number: Z0004196A

PATIENT
  Sex: Male
  Weight: 69.9 kg

DRUGS (4)
  1. PAZOPANIB [Suspect]
     Indication: RENAL CELL CARCINOMA
     Dosage: 800MG PER DAY
     Route: 048
     Dates: start: 20100302, end: 20100509
  2. CIPROFLOXACIN HCL [Concomitant]
     Indication: LUNG INFECTION
     Dosage: 750MG TWICE PER DAY
     Route: 048
  3. ALLOPURINOL [Concomitant]
     Indication: PROPHYLAXIS
     Dosage: 300MG PER DAY
     Route: 048
     Dates: start: 20100501
  4. RABEPRAZOLE SODIUM [Concomitant]
     Indication: GASTRITIS PROPHYLAXIS
     Dosage: 20MG PER DAY
     Route: 048
     Dates: start: 20100501

REACTIONS (4)
  - ASTHENIA [None]
  - BACK PAIN [None]
  - DYSPNOEA [None]
  - LIVER DISORDER [None]
